FAERS Safety Report 5466425-0 (Version None)
Quarter: 2007Q3

REPORT INFORMATION
  Report Type: 
  Country: None (occurrence: None)
  Receive Date: 20070820
  Receipt Date: 20070531
  Transmission Date: 20080115
  Serious: No
  Sender: FDA-Public Use
  Company Number: WAES 0706USA00057

PATIENT
  Age: 48 Year
  Sex: Female

DRUGS (4)
  1. JANUVIA [Suspect]
     Indication: TYPE 2 DIABETES MELLITUS
     Dosage: 100 MG/DAILY/PO
     Route: 048
     Dates: start: 20070523
  2. SYNTHROID [Concomitant]
  3. ATENOLOL [Concomitant]
  4. POTASSIUM CHLORIDE [Concomitant]

REACTIONS (2)
  - DIZZINESS [None]
  - HEADACHE [None]
